FAERS Safety Report 10530818 (Version 2)
Quarter: 2014Q4

REPORT INFORMATION
  Report Type: Spontaneous
  Country: ES (occurrence: ES)
  Receive Date: 20141021
  Receipt Date: 20141027
  Transmission Date: 20150528
  Serious: Yes (Death, Other)
  Sender: FDA-Public Use
  Company Number: PHHY2014ES135333

PATIENT
  Age: 62 Year
  Sex: Female

DRUGS (8)
  1. BEVACIZUMAB [Concomitant]
     Active Substance: BEVACIZUMAB
     Indication: METASTASES TO LIVER
  2. OXALIPLATIN. [Suspect]
     Active Substance: OXALIPLATIN
     Indication: ADENOCARCINOMA OF COLON
     Dosage: 85 MG/M2, ON DAY 1
     Route: 042
  3. LEUCOVORIN [Concomitant]
     Active Substance: LEUCOVORIN
     Indication: ADENOCARCINOMA OF COLON
     Dosage: 200 MG/M2, ON DAY 1
     Route: 042
  4. OXALIPLATIN. [Suspect]
     Active Substance: OXALIPLATIN
     Indication: METASTASES TO LIVER
  5. 5 FLUORO URACIL [Concomitant]
     Active Substance: FLUOROURACIL
     Indication: ADENOCARCINOMA OF COLON
     Dosage: 400 MG/M2, DAY 1
     Route: 040
  6. 5 FLUORO URACIL [Concomitant]
     Active Substance: FLUOROURACIL
     Indication: METASTASES TO LIVER
     Dosage: 1200 MG/M2, 48-HOUR CONTINUOUS INFUSION
     Route: 040
  7. LEUCOVORIN [Concomitant]
     Active Substance: LEUCOVORIN
     Indication: METASTASES TO LIVER
  8. BEVACIZUMAB [Concomitant]
     Active Substance: BEVACIZUMAB
     Indication: ADENOCARCINOMA OF COLON
     Dosage: 5 MG/KG, UNK
     Route: 065

REACTIONS (4)
  - Neurotoxicity [Unknown]
  - Acute respiratory failure [Fatal]
  - Pulmonary sepsis [Fatal]
  - Drug interaction [Fatal]
